FAERS Safety Report 21528924 (Version 2)
Quarter: 2022Q4

REPORT INFORMATION
  Report Type: Other
  Country: BR (occurrence: BR)
  Receive Date: 20221031
  Receipt Date: 20221117
  Transmission Date: 20230113
  Serious: Yes (Other)
  Sender: FDA-Public Use
  Company Number: BR-SERVIER-S22010958

PATIENT

DRUGS (4)
  1. ONCASPAR [Suspect]
     Active Substance: PEGASPARGASE
     Indication: Precursor T-lymphoblastic leukaemia acute
     Dosage: 2000  IU/M2 ON D12 AND D26
     Route: 065
  2. PREDNISONE [Suspect]
     Active Substance: PREDNISONE
     Indication: Precursor T-lymphoblastic leukaemia acute
     Dosage: 60 MG/M2, QD, FOR 7 DAYS IN PRE-PHASE AND FROM D1 TO D14 IN INDUCTION
     Route: 065
  3. VINCRISTINE [Suspect]
     Active Substance: VINCRISTINE
     Indication: Precursor T-lymphoblastic leukaemia acute
     Dosage: UNK, ON D1, D8, D15, D22
     Route: 065
  4. DAUNORUBICIN [Suspect]
     Active Substance: DAUNORUBICIN
     Indication: Precursor T-lymphoblastic leukaemia acute
     Dosage: UNK, ON D1, D8, D15, D22
     Route: 065

REACTIONS (1)
  - Hypoglycaemia [Recovered/Resolved]
